FAERS Safety Report 10638428 (Version 1)
Quarter: 2014Q4

REPORT INFORMATION
  Report Type: Spontaneous
  Country: US (occurrence: None)
  Receive Date: 20141121
  Receipt Date: 20141121
  Transmission Date: 20150529
  Serious: No
  Sender: FDA-Public Use
  Company Number: 163-10004-14074926

PATIENT
  Age: 54 Year
  Sex: Female
  Weight: 109.77 kg

DRUGS (7)
  1. EFFIENT (PRASUGREL HYDROCHLORIDE) [Concomitant]
  2. METFORMIN [Concomitant]
     Active Substance: METFORMIN HYDROCHLORIDE
  3. PRIMIRINE (PREMARIN) (ESTROGENS CONJUGATED) [Concomitant]
  4. SYNTHROID [Concomitant]
     Active Substance: LEVOTHYROXINE SODIUM
  5. SIMVASTATIN. [Concomitant]
     Active Substance: SIMVASTATIN
  6. OTEZLA [Suspect]
     Active Substance: APREMILAST
     Indication: PSORIATIC ARTHROPATHY
     Route: 048
     Dates: start: 20140723, end: 20140727
  7. ASPIRIN (ACETYLSALICYLIC ACID) [Concomitant]
     Active Substance: ASPIRIN

REACTIONS (8)
  - Psychomotor hyperactivity [None]
  - Insomnia [None]
  - Fatigue [None]
  - Dysphonia [None]
  - Dry eye [None]
  - Respiratory tract congestion [None]
  - Dysgeusia [None]
  - Ocular hyperaemia [None]

NARRATIVE: CASE EVENT DATE: 2014
